FAERS Safety Report 25507952 (Version 1)
Quarter: 2025Q3

REPORT INFORMATION
  Report Type: Spontaneous
  Country: CN (occurrence: CN)
  Receive Date: 20250703
  Receipt Date: 20250703
  Transmission Date: 20251020
  Serious: Yes (Other)
  Sender: BEIGENE
  Company Number: CN-BEIGENE-BGN-2025-010350

PATIENT
  Age: 43 Year

DRUGS (13)
  1. TISLELIZUMAB [Suspect]
     Active Substance: TISLELIZUMAB
     Indication: Hepatocellular carcinoma
     Dosage: 200 MILLIGRAM, Q3WK
  2. ENTECAVIR [Concomitant]
     Active Substance: ENTECAVIR
     Indication: Hepatocellular carcinoma
  3. FLUOROURACIL [Concomitant]
     Active Substance: FLUOROURACIL
     Indication: Hepatocellular carcinoma
     Route: 065
  4. FLUOROURACIL [Concomitant]
     Active Substance: FLUOROURACIL
     Route: 065
  5. FLUOROURACIL [Concomitant]
     Active Substance: FLUOROURACIL
     Route: 065
  6. LENVATINIB [Concomitant]
     Active Substance: LENVATINIB
     Indication: Hepatocellular carcinoma
     Dosage: 8 MILLIGRAM, QD
  7. RALTITREXED [Concomitant]
     Active Substance: RALTITREXED
     Indication: Hepatocellular carcinoma
     Route: 065
  8. RALTITREXED [Concomitant]
     Active Substance: RALTITREXED
     Route: 065
  9. OXALIPLATIN [Concomitant]
     Active Substance: OXALIPLATIN
     Indication: Hepatocellular carcinoma
     Route: 065
  10. OXALIPLATIN [Concomitant]
     Active Substance: OXALIPLATIN
     Route: 065
  11. Epothilone nos [Concomitant]
     Indication: Hepatocellular carcinoma
  12. Epothilone nos [Concomitant]
  13. Epothilone nos [Concomitant]

REACTIONS (2)
  - Immune-mediated cholangitis [Recovered/Resolved]
  - Tumour marker abnormal [Unknown]
